FAERS Safety Report 18051604 (Version 1)
Quarter: 2020Q3

REPORT INFORMATION
  Report Type: Spontaneous
  Country: US (occurrence: US)
  Receive Date: 20200721
  Receipt Date: 20200721
  Transmission Date: 20201103
  Serious: Yes (Life-Threatening, Hospitalization)
  Sender: FDA-Public Use
  Company Number: US-AMERICAN REGENT INC-2020001436

PATIENT
  Age: 63 Year
  Sex: Male
  Weight: 137 kg

DRUGS (3)
  1. VENOFER [Suspect]
     Active Substance: IRON SUCROSE
     Indication: IRON DEFICIENCY
     Dosage: 100 MILLIGRAM, EVERY TREATMENT
     Dates: start: 20180416
  2. VENOFER [Suspect]
     Active Substance: IRON SUCROSE
     Dosage: SIXTH DOSE (100 MILLIGRAM, EVERY TREATMENT)
     Dates: start: 20180430, end: 20181008
  3. MIRCERA [Suspect]
     Active Substance: METHOXY POLYETHYLENE GLYCOL-EPOETIN BETA
     Indication: NEPHROGENIC ANAEMIA
     Dosage: 150 MICROGRAM, 1 IN 2 WK
     Dates: start: 20180430, end: 20180430

REACTIONS (4)
  - Dysphagia [Unknown]
  - Pruritus [Unknown]
  - Lip swelling [Unknown]
  - Skin warm [Unknown]

NARRATIVE: CASE EVENT DATE: 20180430
